FAERS Safety Report 24104340 (Version 1)
Quarter: 2024Q3

REPORT INFORMATION
  Report Type: Spontaneous
  Country: CN (occurrence: CN)
  Receive Date: 20240717
  Receipt Date: 20240717
  Transmission Date: 20241017
  Serious: Yes (Other)
  Sender: NOVAST
  Company Number: CN-NOVAST LABORATORIES INC.-2024NOV000272

PATIENT

DRUGS (2)
  1. METOPROLOL SUCCINATE [Suspect]
     Active Substance: METOPROLOL SUCCINATE
     Indication: Arrhythmia
     Dosage: 100 MILLIGRAM, QD
     Route: 048
     Dates: start: 20240626, end: 20240702
  2. METOPROLOL TARTRATE [Concomitant]
     Active Substance: METOPROLOL TARTRATE
     Indication: Arrhythmia
     Dosage: UNK
     Route: 048
     Dates: start: 20240624, end: 20240625

REACTIONS (3)
  - Atrial fibrillation [Unknown]
  - Hypotension [Recovering/Resolving]
  - Product use in unapproved indication [Unknown]

NARRATIVE: CASE EVENT DATE: 20240626
